FAERS Safety Report 18067302 (Version 1)
Quarter: 2020Q3

REPORT INFORMATION
  Report Type: Spontaneous
  Country: QA (occurrence: QA)
  Receive Date: 20200724
  Receipt Date: 20200724
  Transmission Date: 20201103
  Serious: Yes (Hospitalization)
  Sender: FDA-Public Use
  Company Number: QA-AKORN PHARMACEUTICALS-2020AKN00952

PATIENT
  Age: 17 Year
  Sex: Male
  Weight: 54 kg

DRUGS (1)
  1. ISOTRETINOIN. [Suspect]
     Active Substance: ISOTRETINOIN
     Indication: ACNE
     Dosage: 30 MG, 1X/DAY
     Route: 065

REACTIONS (3)
  - Hallucination, auditory [Recovered/Resolved]
  - Psychogenic seizure [Recovered/Resolved]
  - Psychotic disorder [Recovered/Resolved]
